FAERS Safety Report 6646722-3 (Version None)
Quarter: 2010Q1

REPORT INFORMATION
  Report Type: 
  Country: None (occurrence: None)
  Receive Date: 20100323
  Receipt Date: 20100309
  Transmission Date: 20100710
  Serious: Yes (Other)
  Sender: FDA-Public Use
  Company Number: DE-ROCHE-676934

PATIENT
  Sex: Male
  Weight: 78 kg

DRUGS (1)
  1. LARIAM [Suspect]
     Indication: MALARIA PROPHYLAXIS
     Route: 048
     Dates: start: 20080630, end: 20080704

REACTIONS (3)
  - ERECTILE DYSFUNCTION [None]
  - OVERDOSE [None]
  - PANCREATITIS [None]
